FAERS Safety Report 14384729 (Version 1)
Quarter: 2018Q1

REPORT INFORMATION
  Report Type: Spontaneous
  Country: US (occurrence: US)
  Receive Date: 20180115
  Receipt Date: 20180115
  Transmission Date: 20180509
  Serious: Yes (Hospitalization)
  Sender: FDA-Public Use
  Company Number: US-JNJFOC-20180115568

PATIENT
  Age: 84 Year
  Sex: Male
  Weight: 113 kg

DRUGS (10)
  1. IMBRUVICA [Suspect]
     Active Substance: IBRUTINIB
     Indication: PRODUCT USED FOR UNKNOWN INDICATION
     Route: 048
     Dates: start: 20171030
  2. ASPIRIN. [Concomitant]
     Active Substance: ASPIRIN
  3. STOOL SOFTENER (DOCUSATE) [Concomitant]
     Active Substance: DOCUSATE
  4. TETRYZOLINE HYDROCHLORIDE [Concomitant]
     Active Substance: TETRAHYDROZOLINE HYDROCHLORIDE
  5. METOPROLOL. [Concomitant]
     Active Substance: METOPROLOL
  6. PANTOPRAZOLE [Concomitant]
     Active Substance: PANTOPRAZOLE
  7. FUROSEMIDE. [Concomitant]
     Active Substance: FUROSEMIDE
  8. ALLOPURINOL. [Concomitant]
     Active Substance: ALLOPURINOL
  9. ALPRAZOLAM. [Concomitant]
     Active Substance: ALPRAZOLAM
  10. TRAMADOL. [Concomitant]
     Active Substance: TRAMADOL

REACTIONS (1)
  - Hypoxia [Unknown]

NARRATIVE: CASE EVENT DATE: 20171229
